FAERS Safety Report 16493803 (Version 1)
Quarter: 2019Q2

REPORT INFORMATION
  Report Type: Spontaneous
  Country: US (occurrence: US)
  Receive Date: 20190628
  Receipt Date: 20190628
  Transmission Date: 20190711
  Serious: Yes (Hospitalization)
  Sender: FDA-Public Use
  Company Number: US-DRREDDYS-USA/USA/19/0111415

PATIENT
  Age: 77 Year
  Sex: Female

DRUGS (2)
  1. DECITABINE. [Suspect]
     Active Substance: DECITABINE
     Indication: ACUTE PROMYELOCYTIC LEUKAEMIA
     Route: 065
  2. DECITABINE. [Suspect]
     Active Substance: DECITABINE
     Dosage: ON HOSPITAL DAY 22, TWO 5-DAY CONSOLIDATION CYCLES OF DECITABINE WERE GIVEN BY HER LOCAL ONCOLOGIST

REACTIONS (9)
  - Myocardial infarction [Recovered/Resolved]
  - Aphasia [Recovered/Resolved]
  - Therapeutic response unexpected [Recovered/Resolved]
  - Gait disturbance [Recovered/Resolved]
  - Mouth ulceration [Recovered/Resolved]
  - Coagulopathy [Recovered/Resolved]
  - Embolism [Recovered/Resolved]
  - Facial paresis [Recovered/Resolved]
  - Fatigue [Recovered/Resolved]
